FAERS Safety Report 8475779-2 (Version None)
Quarter: 2012Q2

REPORT INFORMATION
  Report Type: 
  Country: None (occurrence: None)
  Receive Date: 20120628
  Receipt Date: 20120619
  Transmission Date: 20120825
  Serious: Yes (Other)
  Sender: FDA-Public Use
  Company Number: US-ASTRAZENECA-2010SE33350

PATIENT
  Age: 65 Year
  Sex: Female

DRUGS (3)
  1. TOPROL-XL [Suspect]
     Route: 048
  2. SEROQUEL [Suspect]
     Indication: STRESS
     Route: 048
  3. CRESTOR [Suspect]
     Route: 048

REACTIONS (9)
  - LIPIDS INCREASED [None]
  - ANXIETY [None]
  - DYSPNOEA [None]
  - CARDIAC DISORDER [None]
  - STRESS [None]
  - HICCUPS [None]
  - MYOCARDIAL INFARCTION [None]
  - HEAD INJURY [None]
  - PALPITATIONS [None]
